FAERS Safety Report 4797309-9 (Version None)
Quarter: 2005Q4

REPORT INFORMATION
  Report Type: 
  Country: None (occurrence: None)
  Receive Date: 20051011
  Receipt Date: 20051011
  Transmission Date: 20060501
  Serious: Yes (Life-Threatening)
  Sender: FDA-Public Use
  Company Number: None

PATIENT
  Age: 84 Year
  Sex: Male
  Weight: 50 kg

DRUGS (3)
  1. DROTRECOGIN ALFA 24 MCG /KG/MIN X 96 HOURS [Suspect]
     Indication: SEPTIC SHOCK
     Dates: start: 20050518, end: 20050519
  2. DROTRECOGIN ALFA 24 MCG /KG/MIN X 96 HOURS [Suspect]
     Indication: UROSEPSIS
     Dates: start: 20050518, end: 20050519
  3. FAMOTIDINE [Concomitant]

REACTIONS (1)
  - GASTROINTESTINAL HAEMORRHAGE [None]
